FAERS Safety Report 8845817 (Version 1)
Quarter: 2012Q4

REPORT INFORMATION
  Report Type: 
  Country: US (occurrence: US)
  Receive Date: 20121017
  Receipt Date: 20121017
  Transmission Date: 20130627
  Serious: Yes (Hospitalization)
  Sender: FDA-Public Use
  Company Number: US-ROCHE-1141114

PATIENT
  Sex: Male
  Weight: 16.8 kg

DRUGS (1)
  1. NUTROPIN AQ [Suspect]
     Indication: GROWTH HORMONE DEFICIENCY
     Route: 058

REACTIONS (4)
  - Syringomyelia [Unknown]
  - Meningitis aseptic [Unknown]
  - Scoliosis [Unknown]
  - Weight increased [Unknown]
